FAERS Safety Report 23897776 (Version 1)
Quarter: 2024Q2

REPORT INFORMATION
  Report Type: Spontaneous
  Country: NL (occurrence: NL)
  Receive Date: 20240524
  Receipt Date: 20240524
  Transmission Date: 20240716
  Serious: Yes (Other)
  Sender: FDA-Public Use
  Company Number: NL-SA-2024SA156729

PATIENT
  Age: 29 Year
  Sex: Male

DRUGS (3)
  1. DUPILUMAB [Suspect]
     Active Substance: DUPILUMAB
     Indication: Dermatitis atopic
     Dosage: UNK
     Dates: start: 202009
  2. DUPILUMAB [Suspect]
     Active Substance: DUPILUMAB
     Dosage: 300 MG, QOW
  3. CORTICOSTEROID NOS [Concomitant]
     Active Substance: CORTICOSTEROID NOS
     Indication: Dermatitis atopic
     Dosage: UNK
     Route: 061

REACTIONS (11)
  - Psoriatic arthropathy [Unknown]
  - Polyarthritis [Unknown]
  - Arthritis [Unknown]
  - Malaise [Unknown]
  - Joint stiffness [Unknown]
  - Psoriasis [Unknown]
  - Hyperkeratosis [Unknown]
  - Skin plaque [Unknown]
  - Parakeratosis [Unknown]
  - Acanthosis [Unknown]
  - Eczema [Unknown]
